FAERS Safety Report 5858180-7 (Version None)
Quarter: 2008Q3

REPORT INFORMATION
  Report Type: 
  Country: None (occurrence: None)
  Receive Date: 20080826
  Receipt Date: 20080821
  Transmission Date: 20090109
  Serious: Yes (Hospitalization, Other)
  Sender: FDA-Public Use
  Company Number: A0718455A

PATIENT
  Age: 58 Year
  Sex: Male
  Weight: 96.4 kg

DRUGS (6)
  1. AVANDIA [Suspect]
     Indication: DIABETES MELLITUS
     Dosage: 4MG PER DAY
     Dates: start: 20021018, end: 20050101
  2. AVANDAMET [Suspect]
     Indication: DIABETES MELLITUS
     Dosage: 4MG TWICE PER DAY
     Dates: start: 20021018, end: 20050101
  3. AVANDARYL [Suspect]
     Indication: DIABETES MELLITUS
     Dates: start: 20021018, end: 20050101
  4. METFORMIN HCL [Concomitant]
     Dates: start: 20040331
  5. GLUCOTROL [Concomitant]
     Dates: start: 20040331, end: 20050201
  6. DIABETA [Concomitant]
     Dates: start: 19980101

REACTIONS (10)
  - ARRHYTHMIA [None]
  - CARDIAC FAILURE CONGESTIVE [None]
  - CARDIAC VALVE DISEASE [None]
  - CARDIOVASCULAR DISORDER [None]
  - CEREBROVASCULAR DISORDER [None]
  - CORONARY ARTERY DISEASE [None]
  - HYPERTENSION [None]
  - LOSS OF CONSCIOUSNESS [None]
  - MYOCARDIAL INFARCTION [None]
  - THROMBOSIS [None]
